FAERS Safety Report 21280159 (Version 1)
Quarter: 2022Q3

REPORT INFORMATION
  Report Type: Spontaneous
  Country: US (occurrence: None)
  Receive Date: 20220831
  Receipt Date: 20220831
  Transmission Date: 20221027
  Serious: Yes (Hospitalization)
  Sender: FDA-Public Use
  Company Number: None

PATIENT
  Age: 36 Year
  Sex: Female
  Weight: 66 kg

DRUGS (8)
  1. TRUXIMA [Suspect]
     Active Substance: RITUXIMAB-ABBS
     Indication: Systemic lupus erythematosus
     Dates: start: 20220812, end: 20220812
  2. RAVULIZUMAB [Concomitant]
     Active Substance: RAVULIZUMAB
     Dates: end: 20220802
  3. PREDNISONE [Concomitant]
     Active Substance: PREDNISONE
  4. BENLYSTA [Concomitant]
     Active Substance: BELIMUMAB
     Dates: start: 20220802
  5. ATOVAQUONE [Concomitant]
     Active Substance: ATOVAQUONE
  6. OLANZAPINE [Concomitant]
     Active Substance: OLANZAPINE
  7. PANTOPRAZOLE [Concomitant]
     Active Substance: PANTOPRAZOLE
  8. FUROSEMIDE [Concomitant]
     Active Substance: FUROSEMIDE

REACTIONS (2)
  - Rash morbilliform [None]
  - Pyrexia [None]

NARRATIVE: CASE EVENT DATE: 20220823
